FAERS Safety Report 9835971 (Version 3)
Quarter: 2014Q2

REPORT INFORMATION
  Report Type: Spontaneous
  Country: JP (occurrence: JP)
  Receive Date: 20140122
  Receipt Date: 20140523
  Transmission Date: 20141212
  Serious: Yes (Hospitalization, Other)
  Sender: FDA-Public Use
  Company Number: PHHY2014JP006566

PATIENT
  Age: 69 Year
  Sex: Female
  Weight: 36 kg

DRUGS (5)
  1. ZOMETA [Suspect]
     Indication: METASTASES TO BONE
     Dosage: 4 MG, PER ADMINISTRATION
     Route: 041
     Dates: start: 200702, end: 201401
  2. AREDIA [Concomitant]
     Dosage: UNK UKN, UNK
     Route: 041
     Dates: start: 200405, end: 200701
  3. ANASTROZOLE [Concomitant]
     Dosage: UNK UKN, UNK
     Route: 048
     Dates: start: 200405, end: 200408
  4. TS-1 [Concomitant]
     Dosage: UNK UKN, UNK
     Route: 048
     Dates: start: 200908, end: 201203
  5. XELODA [Concomitant]
     Dosage: UNK UKN, UNK
     Route: 048
     Dates: start: 201204

REACTIONS (6)
  - Rib fracture [Recovered/Resolved]
  - Femur fracture [Recovered/Resolved]
  - Breast cancer [Unknown]
  - Malignant neoplasm progression [Unknown]
  - Fall [Unknown]
  - Inappropriate schedule of drug administration [Unknown]
